FAERS Safety Report 17980592 (Version 1)
Quarter: 2020Q3

REPORT INFORMATION
  Report Type: Spontaneous
  Country: HR (occurrence: HR)
  Receive Date: 20200704
  Receipt Date: 20200704
  Transmission Date: 20201103
  Serious: Yes (Other)
  Sender: FDA-Public Use
  Company Number: HR-TEVA-2020-HR-1794603

PATIENT
  Age: 71 Year
  Sex: Female
  Weight: 83 kg

DRUGS (1)
  1. KLAVOCIN [Suspect]
     Active Substance: AMOXICILLIN\CLAVULANIC ACID
     Route: 048
     Dates: start: 2020

REACTIONS (1)
  - Choking [Unknown]

NARRATIVE: CASE EVENT DATE: 2020
